FAERS Safety Report 4471934-7 (Version None)
Quarter: 2004Q4

REPORT INFORMATION
  Report Type: 
  Country: None (occurrence: None)
  Receive Date: 20041007
  Receipt Date: 20040924
  Transmission Date: 20050328
  Serious: Yes (Death)
  Sender: FDA-Public Use
  Company Number: FR-SHR-04-024616

PATIENT
  Age: 36 Year
  Sex: Male
  Weight: 100 kg

DRUGS (15)
  1. REFLUDAN [Suspect]
     Indication: HEPARIN-INDUCED THROMBOCYTOPENIA
     Dosage: 300 MG, INTRAVENOUS; 0.4 MG/KG, IV BOLUS
     Route: 042
     Dates: start: 20040422, end: 20040422
  2. REFLUDAN [Suspect]
     Indication: HEPARIN-INDUCED THROMBOCYTOPENIA
     Dosage: 300 MG, INTRAVENOUS; 0.4 MG/KG, IV BOLUS
     Route: 042
     Dates: start: 20040422, end: 20040423
  3. DANAPAROID (DANAPAROID) [Concomitant]
  4. HEPARIN [Concomitant]
  5. DURAGESIC [Concomitant]
  6. SOLUPRED (PREDNISOLONE SODIUM SULFOBENZOATE) [Concomitant]
  7. LAROXYL [Concomitant]
  8. HEPT-A-MYL (HEPTAMINOL HYDROCHLORIDE) [Concomitant]
  9. KETOPROFEN [Concomitant]
  10. INDOXIUM [Concomitant]
  11. CETORNAN (ORNITHINE OXOGLURATE) [Concomitant]
  12. PRIMPERAN TAB [Concomitant]
  13. IMOVANE (ZOPICLONE) [Concomitant]
  14. NEURONTIN [Concomitant]
  15. SETISKENAN [Concomitant]

REACTIONS (1)
  - DISSEMINATED INTRAVASCULAR COAGULATION [None]
